FAERS Safety Report 18580434 (Version 3)
Quarter: 2021Q3

REPORT INFORMATION
  Report Type: Spontaneous
  Country: BR (occurrence: BR)
  Receive Date: 20201204
  Receipt Date: 20210701
  Transmission Date: 20211014
  Serious: Yes (Hospitalization)
  Sender: FDA-Public Use
  Company Number: BR-BIOMARINAP-BR-2020-133696

PATIENT
  Age: 19 Year
  Sex: Male
  Weight: 29 kg

DRUGS (4)
  1. NAGLAZYME [Suspect]
     Active Substance: GALSULFASE
     Indication: MUCOPOLYSACCHARIDOSIS VI
     Dosage: 30 MILLIGRAM, QW
     Route: 042
     Dates: start: 20071123
  2. AVAMYS [Concomitant]
     Active Substance: FLUTICASONE FUROATE
     Indication: PRODUCT USED FOR UNKNOWN INDICATION
     Dosage: UNK, BID
  3. METOPROLOL. [Concomitant]
     Active Substance: METOPROLOL
     Indication: PRODUCT USED FOR UNKNOWN INDICATION
     Dosage: UNK, QD
  4. TEGRETOL [Concomitant]
     Active Substance: CARBAMAZEPINE
     Indication: PRODUCT USED FOR UNKNOWN INDICATION
     Dosage: UNK, BID

REACTIONS (1)
  - Seizure [Unknown]

NARRATIVE: CASE EVENT DATE: 20201125
